FAERS Safety Report 7389559-2 (Version None)
Quarter: 2011Q2

REPORT INFORMATION
  Report Type: 
  Country: None (occurrence: None)
  Receive Date: 20110401
  Receipt Date: 20110318
  Transmission Date: 20111010
  Serious: Yes (Other)
  Sender: FDA-Public Use
  Company Number: US-ASTRAZENECA-2007UW05139

PATIENT
  Sex: Female
  Weight: 59 kg

DRUGS (4)
  1. PROZAC [Concomitant]
     Dates: start: 19940901
  2. SEROQUEL [Suspect]
     Indication: DEPRESSION
     Dosage: 300 MG TO 500 MG
     Route: 048
     Dates: start: 20020625, end: 20060427
  3. ZYPREXA [Concomitant]
     Dates: start: 20000101, end: 20020101
  4. DEPAKOTE [Concomitant]
     Dates: start: 20000101

REACTIONS (3)
  - SKIN GRAFT [None]
  - LIMB INJURY [None]
  - TYPE 2 DIABETES MELLITUS [None]
